FAERS Safety Report 9542605 (Version 3)
Quarter: 2013Q4

REPORT INFORMATION
  Report Type: Spontaneous
  Country: US (occurrence: US)
  Receive Date: 20130923
  Receipt Date: 20131030
  Transmission Date: 20140711
  Serious: No
  Sender: FDA-Public Use
  Company Number: US-PFIZER INC-2013269331

PATIENT
  Age: 5 Year
  Sex: Male
  Weight: 21.5 kg

DRUGS (2)
  1. QUILLIVANT XR [Suspect]
     Indication: ATTENTION DEFICIT/HYPERACTIVITY DISORDER
     Dosage: 3 ML, ONCE A DAY
     Route: 048
     Dates: start: 201302, end: 2013
  2. QUILLIVANT XR [Suspect]
     Dosage: 4 ML IN THE MORNING, 4 ML AT NOON AND 2.5 ML AT 4PM, 3X/DAY
     Route: 048
     Dates: start: 2013, end: 20130923

REACTIONS (3)
  - Appetite disorder [Not Recovered/Not Resolved]
  - Product quality issue [Recovered/Resolved]
  - Drug ineffective [Recovered/Resolved]
